FAERS Safety Report 11920857 (Version 1)
Quarter: 2016Q1

REPORT INFORMATION
  Report Type: Spontaneous
  Country: US (occurrence: US)
  Receive Date: 20160115
  Receipt Date: 20160115
  Transmission Date: 20160526
  Serious: No
  Sender: FDA-Public Use
  Company Number: US-ASTELLAS-2015US033417

PATIENT
  Age: 82 Year
  Sex: Male

DRUGS (1)
  1. MYRBETRIQ [Suspect]
     Active Substance: MIRABEGRON
     Indication: HYPERTONIC BLADDER
     Route: 065
     Dates: start: 2015

REACTIONS (7)
  - Urine output decreased [Not Recovered/Not Resolved]
  - Micturition urgency [Unknown]
  - Urine abnormality [Unknown]
  - Urinary incontinence [Not Recovered/Not Resolved]
  - Intentional product misuse [Unknown]
  - Drug effect incomplete [Unknown]
  - Abdominal pain upper [Recovered/Resolved]
